FAERS Safety Report 18137718 (Version 3)
Quarter: 2020Q3

REPORT INFORMATION
  Report Type: Report from Study
  Country: None (occurrence: NL)
  Receive Date: 20200811
  Receipt Date: 20200825
  Transmission Date: 20201103
  Serious: Yes (Hospitalization)
  Sender: FDA-Public Use
  Company Number: NL-ABBVIE-20K-114-3517812-00

PATIENT
  Age: 72 Year
  Sex: Female

DRUGS (7)
  1. DUODOPA [Suspect]
     Active Substance: CARBIDOPA\LEVODOPA
     Dosage: CD: 3.2 ED: 2.5 24 HOUR ADMINISTRATION
     Route: 050
  2. MACROGOL [Concomitant]
     Active Substance: POLYETHYLENE GLYCOLS
     Indication: PRODUCT USED FOR UNKNOWN INDICATION
  3. BEPANTHEN [Concomitant]
     Indication: PRODUCT USED FOR UNKNOWN INDICATION
  4. DUODOPA [Suspect]
     Active Substance: CARBIDOPA\LEVODOPA
     Dosage: MD: 5.0 CD: 5.0 ED: 2.5 16 HOUR ADMINISTRATION
     Route: 050
     Dates: end: 2020
  5. DUODOPA [Suspect]
     Active Substance: CARBIDOPA\LEVODOPA
     Indication: PARKINSON^S DISEASE
     Dosage: MD: 5.0 CD: 5.2 ED: 2.5 REMAINS AT 24 HOURS
     Route: 050
     Dates: start: 20160523
  6. DUODOPA [Suspect]
     Active Substance: CARBIDOPA\LEVODOPA
     Dosage: MD: 5.0, CD: 5.2, ED: 2.5, CND: 3.2, END: 2.5; 24 HOUR ADMINISTRATION DOSE INCREASED
     Route: 050
     Dates: start: 2020
  7. DUODOPA [Suspect]
     Active Substance: CARBIDOPA\LEVODOPA
     Dosage: MD: 5.0 CD: 5.2 ED: 2.5 16HOUR ADMINISTRATION
     Route: 050
     Dates: start: 2020, end: 2020

REACTIONS (5)
  - Fluid retention [Recovered/Resolved]
  - General physical health deterioration [Not Recovered/Not Resolved]
  - Groin pain [Not Recovered/Not Resolved]
  - Cardiac failure [Recovered/Resolved]
  - Unevaluable event [Recovered/Resolved]

NARRATIVE: CASE EVENT DATE: 20200728
